FAERS Safety Report 7273665-7 (Version None)
Quarter: 2010Q4

REPORT INFORMATION
  Report Type: 
  Country: None (occurrence: None)
  Receive Date: 20101130
  Receipt Date: 20091028
  Transmission Date: 20110411
  Serious: Yes (Other)
  Sender: FDA-Public Use
  Company Number: 2009SP033298

PATIENT
  Sex: Female
  Weight: 54.4316 kg

DRUGS (2)
  1. NUVARING [Suspect]
     Indication: PRODUCT USED FOR UNKNOWN INDICATION
     Dosage: 1 DF;QM;VAG
     Route: 067
     Dates: start: 20030101, end: 20090801
  2. PREVACID [Concomitant]

REACTIONS (8)
  - ABDOMINAL PAIN [None]
  - ACNE [None]
  - DYSPEPSIA [None]
  - EXERTIONAL HEADACHE [None]
  - GALLBLADDER DISORDER [None]
  - IRRITABLE BOWEL SYNDROME [None]
  - LACTOSE INTOLERANCE [None]
  - MUSCLE SPASMS [None]
